FAERS Safety Report 15607998 (Version 1)
Quarter: 2018Q4

REPORT INFORMATION
  Report Type: Spontaneous
  Country: US (occurrence: US)
  Receive Date: 20181112
  Receipt Date: 20181112
  Transmission Date: 20190205
  Serious: Yes (Hospitalization, Other)
  Sender: FDA-Public Use
  Company Number: US-ABBVIE-18K-163-2445063-00

PATIENT
  Sex: Male
  Weight: 91.25 kg

DRUGS (1)
  1. HUMIRA [Suspect]
     Active Substance: ADALIMUMAB
     Indication: ANKYLOSING SPONDYLITIS
     Route: 058

REACTIONS (5)
  - Abdominal pain upper [Unknown]
  - Small intestine carcinoma stage IV [Unknown]
  - Small intestinal obstruction [Unknown]
  - Back pain [Unknown]
  - Vomiting [Unknown]

NARRATIVE: CASE EVENT DATE: 2018
